FAERS Safety Report 13071084 (Version 2)
Quarter: 2017Q1

REPORT INFORMATION
  Report Type: Spontaneous
  Country: CA (occurrence: CA)
  Receive Date: 20161229
  Receipt Date: 20170206
  Transmission Date: 20170428
  Serious: Yes (Other)
  Sender: FDA-Public Use
  Company Number: CA-AUROBINDO-AUR-APL-2016-15733

PATIENT
  Age: 55 Year
  Sex: Male

DRUGS (2)
  1. ROPINIROLE. [Suspect]
     Active Substance: ROPINIROLE
     Indication: PARKINSON^S DISEASE
     Route: 065
  2. PRAMIPEXOLE. [Suspect]
     Active Substance: PRAMIPEXOLE
     Indication: PARKINSON^S DISEASE
     Dosage: UNK
     Route: 065

REACTIONS (10)
  - Dizziness [Recovered/Resolved]
  - Apathy [Recovered/Resolved]
  - Depression [Recovered/Resolved]
  - Impulse-control disorder [Recovered/Resolved]
  - Fatigue [Recovered/Resolved]
  - Social avoidant behaviour [Recovered/Resolved]
  - Compulsive shopping [Recovered/Resolved]
  - Pain [Recovered/Resolved]
  - Anxiety [Recovered/Resolved]
  - Withdrawal syndrome [Recovered/Resolved]
